FAERS Safety Report 4937742-5 (Version None)
Quarter: 2006Q1

REPORT INFORMATION
  Report Type: 
  Country: None (occurrence: None)
  Receive Date: 20060302
  Receipt Date: 20060220
  Transmission Date: 20060701
  Serious: Yes (Other)
  Sender: FDA-Public Use
  Company Number: 2006025566

PATIENT
  Sex: Female

DRUGS (7)
  1. DOXAZOSIN (DOXAZOSIN) [Suspect]
     Indication: HYPERTENSION
     Dosage: 2 MG, ORAL
     Route: 048
     Dates: start: 20060112, end: 20060201
  2. LISINOPRIL [Concomitant]
  3. ATENOLOL [Concomitant]
  4. BEZAFIBRATE [Concomitant]
  5. HELICLEAR (AMOXICILLIN TRIHYDRATE, CLARITHROMYCIN, LANSOPRAZOLE) [Concomitant]
  6. RISEDRONATE (RISEDRONIC ACID) [Concomitant]
  7. ADCAL-D3 (CALCIUM CARBONATE, COLECALCIFEROL) [Concomitant]

REACTIONS (2)
  - TONGUE DISCOLOURATION [None]
  - TOOTH DISCOLOURATION [None]
